FAERS Safety Report 4778366-2 (Version None)
Quarter: 2005Q3

REPORT INFORMATION
  Report Type: 
  Country: None (occurrence: None)
  Receive Date: 20050922
  Receipt Date: 20050915
  Transmission Date: 20060218
  Serious: Yes (Hospitalization)
  Sender: FDA-Public Use
  Company Number: SU-2005-004027

PATIENT
  Age: 58 Year
  Sex: Female
  Weight: 97.0698 kg

DRUGS (6)
  1. BENICAR [Suspect]
     Indication: HYPERTENSION
     Dosage: 40 MG QD PO
     Route: 048
     Dates: start: 20030804, end: 20050831
  2. PREMARIN   /NEZ/ [Concomitant]
  3. POTASSIUM CHLORIDE [Concomitant]
  4. HYDROCHLOROTHIAZIDE [Concomitant]
  5. CLARINEX [Concomitant]
  6. NASONEX [Concomitant]

REACTIONS (9)
  - COELIAC DISEASE [None]
  - DEHYDRATION [None]
  - FALL [None]
  - HEAD INJURY [None]
  - HYPOTENSION [None]
  - NAUSEA [None]
  - ORAL INTAKE REDUCED [None]
  - SKIN LACERATION [None]
  - VOMITING [None]
